APPROVED DRUG PRODUCT: PHENY-PAS-TEBAMIN
Active Ingredient: PHENYL AMINOSALICYLATE
Strength: 500MG
Dosage Form/Route: TABLET;ORAL
Application: N011695 | Product #003
Applicant: PHARMACEUTICAL RESEARCH ASSOC INC
Approved: Approved Prior to Jan 1, 1982 | RLD: No | RS: No | Type: DISCN